FAERS Safety Report 4893548-7 (Version None)
Quarter: 2005Q4

REPORT INFORMATION
  Report Type: 
  Country: None (occurrence: None)
  Receive Date: 20051223
  Receipt Date: 20050609
  Transmission Date: 20060501
  Serious: Yes (Hospitalization)
  Sender: FDA-Public Use
  Company Number: PHEH2005US06560

PATIENT
  Age: 66 Year
  Sex: Female

DRUGS (4)
  1. CLOZARIL [Suspect]
     Dosage: 100MG Q6AM, 225MG QHS, INTRAGASTRIC
     Dates: start: 20050301
  2. XANAX XR [Concomitant]
  3. XANAX [Concomitant]
  4. DIPHENHYDRAMINE HCL [Concomitant]

REACTIONS (2)
  - DRUG INEFFECTIVE [None]
  - MALIGNANT NEOPLASM PROGRESSION [None]
